FAERS Safety Report 4555584-X (Version None)
Quarter: 2005Q1

REPORT INFORMATION
  Report Type: 
  Country: None (occurrence: None)
  Receive Date: 20050118
  Receipt Date: 20050118
  Transmission Date: 20050727
  Serious: Yes (Life-Threatening)
  Sender: FDA-Public Use
  Company Number: None

PATIENT
  Age: 40 Year
  Sex: Male
  Weight: 81.6475 kg

DRUGS (4)
  1. RANITIDINE [Suspect]
     Indication: GASTROOESOPHAGEAL REFLUX DISEASE
     Dosage: 1 BID
  2. PROMETHAZINE [Suspect]
     Indication: NAUSEA
     Dosage: 1 Q 4-6 HRS
  3. ZANTAC [Concomitant]
  4. PHENERGAN [Concomitant]

REACTIONS (1)
  - HYPERSENSITIVITY [None]
